FAERS Safety Report 7745159-3 (Version None)
Quarter: 2011Q3

REPORT INFORMATION
  Report Type: 
  Country: None (occurrence: None)
  Receive Date: 20110913
  Receipt Date: 20110902
  Transmission Date: 20111222
  Serious: Yes (Other)
  Sender: FDA-Public Use
  Company Number: US-SP-2011-06617

PATIENT
  Sex: Female

DRUGS (5)
  1. RABIES VACCINE [Suspect]
     Indication: IMMUNISATION
     Route: 065
  2. RABIES VACCINE [Suspect]
     Route: 065
     Dates: start: 20110804, end: 20110804
  3. IMMUNOGLOBULIN HUMAN ANTIRABIES [Suspect]
     Indication: PRODUCT USED FOR UNKNOWN INDICATION
     Route: 065
     Dates: start: 20110726, end: 20110802
  4. SYNTHROID [Concomitant]
  5. INHALER [Concomitant]
     Dosage: AS NEEDED FOR ASTHMA

REACTIONS (9)
  - CHEST PAIN [None]
  - NAUSEA [None]
  - FATIGUE [None]
  - DYSPHONIA [None]
  - LYMPHADENOPATHY [None]
  - BREAST PAIN [None]
  - HEADACHE [None]
  - DYSPNOEA [None]
  - OVERDOSE [None]
